FAERS Safety Report 25895408 (Version 1)
Quarter: 2025Q4

REPORT INFORMATION
  Report Type: Spontaneous
  Country: TN (occurrence: TN)
  Receive Date: 20251008
  Receipt Date: 20251008
  Transmission Date: 20260118
  Serious: Yes (Other)
  Sender: RANBAXY
  Company Number: TN-SUN PHARMACEUTICAL INDUSTRIES INC-2025RR-529137

PATIENT
  Age: 26 Year
  Sex: Male

DRUGS (2)
  1. PAZOPANIB [Suspect]
     Active Substance: PAZOPANIB
     Indication: Metastases to lung
     Dosage: UNK
     Route: 065
     Dates: start: 202008
  2. CABOZANTINIB [Suspect]
     Active Substance: CABOZANTINIB
     Indication: Metastases to lung
     Dosage: 60 MILLIGRAM, DAILY, 60 MG PER DAY
     Route: 065
     Dates: start: 202301

REACTIONS (4)
  - Metastases to lung [Unknown]
  - Therapeutic product effect incomplete [Not Recovered/Not Resolved]
  - Fatigue [Unknown]
  - Hypertension [Unknown]
